FAERS Safety Report 8801671 (Version 9)
Quarter: 2014Q2

REPORT INFORMATION
  Report Type: Report from Study
  Country: MX (occurrence: MX)
  Receive Date: 20120921
  Receipt Date: 20140516
  Transmission Date: 20141212
  Serious: Yes (Death, Life-Threatening, Other)
  Sender: FDA-Public Use
  Company Number: MX-UCBSA-066292

PATIENT
  Age: 67 Year
  Sex: Male
  Weight: 83 kg

DRUGS (12)
  1. NEUPRO [Suspect]
     Indication: PARKINSON^S DISEASE
     Route: 062
     Dates: start: 20110627, end: 20111004
  2. NEUPRO [Suspect]
     Indication: PARKINSON^S DISEASE
     Route: 062
     Dates: start: 20111005, end: 20120312
  3. BUPROPION [Concomitant]
     Indication: DEPRESSION
     Dates: start: 20081226, end: 20120829
  4. CLONAZEPAM [Concomitant]
     Indication: PARKINSON^S DISEASE
     Dates: start: 20071210, end: 20120829
  5. CLONAZEPAM [Concomitant]
     Indication: INSOMNIA
     Dates: start: 20071210, end: 20120829
  6. PRAMIPEXOLE [Concomitant]
     Indication: PARKINSON^S DISEASE
     Dates: start: 20081228, end: 20090821
  7. PRAMIPEXOLE [Concomitant]
     Indication: PARKINSON^S DISEASE
     Dates: start: 20110502, end: 20110627
  8. PRAMIPEXOLE [Concomitant]
     Indication: PARKINSON^S DISEASE
     Dates: start: 20120312, end: 20120829
  9. AMANTADINE [Concomitant]
     Indication: PARKINSON^S DISEASE
     Dates: start: 20120224, end: 20120828
  10. AMANTADINE [Concomitant]
     Indication: PARKINSON^S DISEASE
     Dates: start: 20071210, end: 20120502
  11. STALEVO [Concomitant]
     Indication: PARKINSON^S DISEASE
     Dosage: SINGLE DOSE: 200/100/25 MG
     Dates: start: 20120312, end: 20120828
  12. STALEVO [Concomitant]
     Indication: PARKINSON^S DISEASE
     Dosage: SINGLE DOSE: 100/25/200 MG
     Dates: start: 20090821, end: 20110502

REACTIONS (4)
  - Cardiogenic shock [Fatal]
  - Pneumonia [Not Recovered/Not Resolved]
  - Diabetic hyperosmolar coma [Not Recovered/Not Resolved]
  - Type 2 diabetes mellitus [Not Recovered/Not Resolved]
